FAERS Safety Report 11048152 (Version 1)
Quarter: 2015Q2

REPORT INFORMATION
  Report Type: Spontaneous
  Country: US (occurrence: None)
  Receive Date: 20150417
  Receipt Date: 20150417
  Transmission Date: 20150821
  Serious: No
  Sender: FDA-Public Use
  Company Number: None

PATIENT
  Age: 51 Year
  Sex: Male

DRUGS (11)
  1. GENTAMICIN INJ SOLN [Concomitant]
  2. OXYBUTYNIN [Concomitant]
     Active Substance: OXYBUTYNIN
  3. METHYLPREDNISOLONE SOLN [Concomitant]
  4. OLANZAPINE. [Concomitant]
     Active Substance: OLANZAPINE
  5. AMPYRA [Suspect]
     Active Substance: DALFAMPRIDINE
     Indication: MULTIPLE SCLEROSIS
     Route: 048
     Dates: start: 201102
  6. METHYLPHENIDATE [Concomitant]
     Active Substance: METHYLPHENIDATE
  7. SIMVASTATIN. [Concomitant]
     Active Substance: SIMVASTATIN
  8. LONG TERM USE OF RITUXAN [Concomitant]
  9. DOCUSATE [Concomitant]
     Active Substance: DOCUSATE
  10. SUMATRIPTAN. [Concomitant]
     Active Substance: SUMATRIPTAN
  11. FAMOTIDINE. [Concomitant]
     Active Substance: FAMOTIDINE

REACTIONS (1)
  - Urinary tract infection [None]

NARRATIVE: CASE EVENT DATE: 20141210
